FAERS Safety Report 4667129-4 (Version None)
Quarter: 2005Q2

REPORT INFORMATION
  Report Type: 
  Country: None (occurrence: None)
  Receive Date: 20050520
  Receipt Date: 20040322
  Transmission Date: 20051028
  Serious: Yes (Death, Other)
  Sender: FDA-Public Use
  Company Number: PHEH2004US03342

PATIENT
  Age: 71 Year
  Sex: Male

DRUGS (5)
  1. PREDNISONE TAB [Concomitant]
     Dosage: 50 UNK, QOD
     Dates: start: 20000214, end: 20031201
  2. THALIDOMIDE [Concomitant]
     Dates: start: 20010830, end: 20021220
  3. PAXIL [Concomitant]
     Dosage: 80 UNK, UNK
     Dates: start: 20030120, end: 20030318
  4. VELCADE [Concomitant]
     Dosage: 26 UNK, BIW
     Dates: start: 20030630, end: 20031215
  5. ZOMETA [Suspect]
     Indication: MULTIPLE MYELOMA
     Dosage: 4 MG, QMO
     Route: 042
     Dates: start: 20011204, end: 20031215

REACTIONS (5)
  - BONE INFECTION [None]
  - DISEASE PROGRESSION [None]
  - MALIGNANT NEOPLASM PROGRESSION [None]
  - MULTIPLE MYELOMA [None]
  - OSTEONECROSIS [None]
